FAERS Safety Report 9200440 (Version 1)
Quarter: 2013Q1

REPORT INFORMATION
  Report Type: Spontaneous
  Country: US (occurrence: US)
  Receive Date: 20130329
  Receipt Date: 20130329
  Transmission Date: 20140127
  Serious: Yes (Other)
  Sender: FDA-Public Use
  Company Number: US-UCBSA-073028

PATIENT
  Age: 51 Year
  Sex: Female
  Weight: 82.78 kg

DRUGS (3)
  1. CIMZIA [Suspect]
     Indication: RHEUMATOID ARTHRITIS
     Dates: start: 20121127, end: 201302
  2. CRESTOR [Concomitant]
     Indication: BLOOD CHOLESTEROL INCREASED
  3. SAVELLA [Concomitant]
     Indication: FIBROMYALGIA
     Dates: start: 2010

REACTIONS (10)
  - Nasal congestion [Recovered/Resolved]
  - Pharyngeal erythema [Recovered/Resolved]
  - Injection site pruritus [Recovered/Resolved]
  - Injection site erythema [Recovered/Resolved]
  - Injection site swelling [Recovered/Resolved]
  - Rhinorrhoea [Recovered/Resolved]
  - Pruritus [Recovered/Resolved]
  - Headache [Not Recovered/Not Resolved]
  - Chills [Recovered/Resolved]
  - Pain [Not Recovered/Not Resolved]
